FAERS Safety Report 12400445 (Version 1)
Quarter: 2016Q2

REPORT INFORMATION
  Report Type: Spontaneous
  Country: BR (occurrence: BR)
  Receive Date: 20160525
  Receipt Date: 20160525
  Transmission Date: 20160815
  Serious: Yes (Hospitalization, Other)
  Sender: FDA-Public Use
  Company Number: BR-009507513-1605BRA010302

PATIENT
  Age: 37 Year
  Sex: Female
  Weight: 71 kg

DRUGS (2)
  1. NUVARING [Suspect]
     Active Substance: ETHINYL ESTRADIOL\ETONOGESTREL
     Indication: MENORRHAGIA
  2. NUVARING [Suspect]
     Active Substance: ETHINYL ESTRADIOL\ETONOGESTREL
     Indication: CONTRACEPTION
     Dosage: ONE RING FOR THREE WEEKS WITHOUT PERFORM THE FREE
     Route: 067
     Dates: start: 201512, end: 20160514

REACTIONS (9)
  - Pain in extremity [Unknown]
  - Menorrhagia [Not Recovered/Not Resolved]
  - Dysmenorrhoea [Not Recovered/Not Resolved]
  - Off label use [Recovered/Resolved]
  - Haemorrhage [Unknown]
  - Inappropriate schedule of drug administration [Unknown]
  - Menstruation normal [Recovered/Resolved]
  - Oedema peripheral [Recovering/Resolving]
  - Thrombosis [Recovering/Resolving]

NARRATIVE: CASE EVENT DATE: 201512
